FAERS Safety Report 5584428-2 (Version None)
Quarter: 2008Q1

REPORT INFORMATION
  Report Type: 
  Country: None (occurrence: None)
  Receive Date: 20080108
  Receipt Date: 20071227
  Transmission Date: 20080703
  Serious: Yes (Hospitalization, Other)
  Sender: FDA-Public Use
  Company Number: JP-ELI_LILLY_AND_COMPANY-JP200709005380

PATIENT
  Sex: Female

DRUGS (2)
  1. GEMZAR [Suspect]
     Indication: GALLBLADDER CANCER
     Dosage: 1500 MG, OTHER
     Route: 042
     Dates: start: 20070214, end: 20070815
  2. LEUCON [Concomitant]
     Dosage: 30 MG, UNK
     Dates: start: 20070221, end: 20070910

REACTIONS (12)
  - ANAEMIA [None]
  - ANASTOMOTIC ULCER [None]
  - AORTIC VALVE INCOMPETENCE [None]
  - BACK PAIN [None]
  - CARDIAC FAILURE [None]
  - HAEMOPTYSIS [None]
  - HYPERTENSION [None]
  - MALAISE [None]
  - PLATELET COUNT DECREASED [None]
  - PULMONARY OEDEMA [None]
  - RENAL DISORDER [None]
  - SHOCK [None]
